FAERS Safety Report 5547273-X (Version None)
Quarter: 2007Q4

REPORT INFORMATION
  Report Type: 
  Country: None (occurrence: None)
  Receive Date: 20071211
  Receipt Date: 20071204
  Transmission Date: 20080405
  Serious: Yes (Hospitalization, Other)
  Sender: FDA-Public Use
  Company Number: US-GENENTECH-249349

PATIENT
  Sex: Male
  Weight: 97.052 kg

DRUGS (1)
  1. RITUXAN [Suspect]
     Indication: HAIRY CELL LEUKAEMIA
     Dosage: 800 MG, Q2W
     Route: 042
     Dates: start: 20061110

REACTIONS (3)
  - HYPOTENSION [None]
  - PAIN [None]
  - RASH [None]
